FAERS Safety Report 6423365-8 (Version None)
Quarter: 2009Q4

REPORT INFORMATION
  Report Type: 
  Country: None (occurrence: None)
  Receive Date: 20091102
  Receipt Date: 20091027
  Transmission Date: 20100525
  Serious: Yes (Hospitalization)
  Sender: FDA-Public Use
  Company Number: A0764380A

PATIENT
  Age: 42 Year
  Sex: Female
  Weight: 95.5 kg

DRUGS (9)
  1. AVANDIA [Suspect]
     Dosage: 4MG TWICE PER DAY
     Route: 048
     Dates: start: 20021001, end: 20070801
  2. ACEBUTOLOL [Concomitant]
  3. ZOCOR [Concomitant]
  4. METOPROLOL [Concomitant]
  5. POTASSIUM CHLORIDE [Concomitant]
  6. ALTACE [Concomitant]
  7. WARFARIN SODIUM [Concomitant]
  8. FURSEMID [Concomitant]
  9. METFORMIN HCL [Concomitant]

REACTIONS (7)
  - CARDIAC FAILURE CONGESTIVE [None]
  - CEREBROVASCULAR ACCIDENT [None]
  - HEART INJURY [None]
  - INJURY [None]
  - LEG AMPUTATION [None]
  - MITRAL VALVE REPLACEMENT [None]
  - MYOCARDIAL INFARCTION [None]
